FAERS Safety Report 6054729-2 (Version None)
Quarter: 2009Q1

REPORT INFORMATION
  Report Type: 
  Country: None (occurrence: None)
  Receive Date: 20090128
  Receipt Date: 20090115
  Transmission Date: 20090719
  Serious: Yes (Other)
  Sender: FDA-Public Use
  Company Number: US-BRISTOL-MYERS SQUIBB COMPANY-14477178

PATIENT
  Age: 67 Year
  Sex: Female

DRUGS (14)
  1. CARBIDOPA + LEVODOPA [Suspect]
     Indication: PARKINSON'S DISEASE
     Route: 065
  2. RISPERIDONE [Interacting]
     Route: 048
     Dates: start: 20081215, end: 20090104
  3. COMTAN [Interacting]
     Indication: PARKINSON'S DISEASE
     Route: 065
  4. XANAX [Concomitant]
  5. AMITRIPTYLINE HCL [Concomitant]
  6. ATENOLOL [Concomitant]
     Indication: HYPERTENSION
  7. LEXAPRO [Concomitant]
  8. FOLIC ACID [Concomitant]
  9. PREVACID [Concomitant]
  10. LISINOPRIL [Concomitant]
  11. MORPHINE [Concomitant]
     Indication: PAIN
  12. MS CONTIN [Concomitant]
  13. TORSEMIDE [Concomitant]
  14. POLYETHYLENE GLYCOL 3350 [Concomitant]

REACTIONS (5)
  - CONFUSIONAL STATE [None]
  - DRUG DISPENSING ERROR [None]
  - DRUG INTERACTION [None]
  - PHOTOPHOBIA [None]
  - UNRESPONSIVE TO STIMULI [None]
